FAERS Safety Report 20233298 (Version 1)
Quarter: 2021Q4

REPORT INFORMATION
  Report Type: Spontaneous
  Country: US (occurrence: US)
  Receive Date: 20211227
  Receipt Date: 20211227
  Transmission Date: 20220304
  Serious: Yes (Death, Other)
  Sender: FDA-Public Use
  Company Number: US-MALLINCKRODT-T202105639

PATIENT
  Age: 53 Year
  Sex: Male

DRUGS (14)
  1. INOMAX [Suspect]
     Active Substance: NITRIC OXIDE
     Indication: Respiratory failure
     Dosage: UNK
     Route: 055
  2. EPINEPHRINE [Concomitant]
     Active Substance: EPINEPHRINE
     Indication: Cardio-respiratory arrest
     Dosage: UNK
     Route: 065
  3. SODIUM BICARBONATE [Concomitant]
     Active Substance: SODIUM BICARBONATE
     Indication: Cardio-respiratory arrest
     Dosage: UNK
     Route: 042
  4. SODIUM BICARBONATE [Concomitant]
     Active Substance: SODIUM BICARBONATE
     Indication: Acidosis
     Dosage: UNK
     Route: 042
  5. CALCIUM CHLORIDE [Concomitant]
     Active Substance: CALCIUM CHLORIDE
     Indication: Cardio-respiratory arrest
     Dosage: UNK
     Route: 065
  6. SODIUM CHLORIDE [Concomitant]
     Active Substance: SODIUM CHLORIDE
     Indication: Cardio-respiratory arrest
     Dosage: UNK
     Route: 042
  7. NOREPINEPHRINE [Concomitant]
     Active Substance: NOREPINEPHRINE
     Indication: Hypotension
     Dosage: UNK
     Route: 065
  8. ATROPINE [Concomitant]
     Active Substance: ATROPINE
     Indication: Bradycardia
     Dosage: UNK
     Route: 065
  9. AMIODARONE [Concomitant]
     Active Substance: AMIODARONE
     Indication: Atrial fibrillation
     Dosage: UNK
     Route: 065
  10. FOMEPIZOLE [Concomitant]
     Active Substance: FOMEPIZOLE
     Indication: Toxicity to various agents
     Dosage: 15 MILLIGRAM/KILOGRAM
     Route: 042
  11. FOLIC ACID [Concomitant]
     Active Substance: FOLIC ACID
     Indication: Toxicity to various agents
     Dosage: 50 MILLIGRAM
     Route: 042
  12. THIAMINE [Concomitant]
     Active Substance: THIAMINE
     Indication: Toxicity to various agents
     Dosage: 100 MILLIGRAM
     Route: 042
  13. PYRIDOXINE [Concomitant]
     Active Substance: PYRIDOXINE
     Indication: Toxicity to various agents
     Dosage: 50 MILLIGRAM
     Route: 042
  14. PROPOFOL [Concomitant]
     Active Substance: PROPOFOL
     Indication: Sedation
     Dosage: UNK
     Route: 065

REACTIONS (7)
  - Death [Fatal]
  - Hypoxic-ischaemic encephalopathy [Unknown]
  - Brain oedema [Unknown]
  - Cerebral haemorrhage [Unknown]
  - Brain herniation [Unknown]
  - Drug ineffective for unapproved indication [Unknown]
  - Product use issue [Unknown]
